FAERS Safety Report 21653025 (Version 1)
Quarter: 2022Q4

REPORT INFORMATION
  Report Type: Spontaneous
  Country: FR (occurrence: FR)
  Receive Date: 20221128
  Receipt Date: 20221128
  Transmission Date: 20230113
  Serious: Yes (Other)
  Sender: FDA-Public Use
  Company Number: None

PATIENT
  Sex: Male

DRUGS (1)
  1. DALBAVANCIN HYDROCHLORIDE [Suspect]
     Active Substance: DALBAVANCIN HYDROCHLORIDE
     Indication: Osteitis
     Dosage: UNK, SINGLE
     Dates: start: 20221019, end: 20221019

REACTIONS (1)
  - Injection site reaction [Recovered/Resolved]

NARRATIVE: CASE EVENT DATE: 20221019
